FAERS Safety Report 24065570 (Version 2)
Quarter: 2024Q3

REPORT INFORMATION
  Report Type: Spontaneous
  Country: JP (occurrence: JP)
  Receive Date: 20240709
  Receipt Date: 20240725
  Transmission Date: 20241016
  Serious: No
  Sender: MYOVANT SCIENCES
  Company Number: JP-MYOVANT SCIENCES GMBH-2024MYSCI0601317

PATIENT
  Age: 36 Year
  Sex: Female

DRUGS (3)
  1. RELUGOLIX [Suspect]
     Active Substance: RELUGOLIX
     Indication: Endometriosis
     Dosage: 40 MILLIGRAM, QD
     Route: 048
     Dates: start: 202303, end: 202308
  2. RELUGOLIX [Suspect]
     Active Substance: RELUGOLIX
     Dosage: 40 MILLIGRAM, QD
     Route: 048
     Dates: start: 20240502, end: 20240529
  3. PONSTEL [Concomitant]
     Active Substance: MEFENAMIC ACID
     Indication: Product used for unknown indication
     Dosage: 250 MILLIGRAM, QD
     Route: 065

REACTIONS (1)
  - Depressive symptom [Not Recovered/Not Resolved]

NARRATIVE: CASE EVENT DATE: 20240529
